FAERS Safety Report 6214934-9 (Version None)
Quarter: 2009Q2

REPORT INFORMATION
  Report Type: 
  Country: None (occurrence: None)
  Receive Date: 20090604
  Receipt Date: 20090504
  Transmission Date: 20091009
  Serious: No
  Sender: FDA-Public Use
  Company Number: US-BAYER-200920178GPV

PATIENT
  Age: 14 Year
  Sex: Female

DRUGS (3)
  1. NEXAVAR [Suspect]
     Indication: THYROID CANCER
     Dosage: 300 MG/M^2/DAY; 10 MG/KG/DAY
     Route: 048
     Dates: start: 20060101, end: 20060101
  2. NEXAVAR [Suspect]
     Dosage: 72MG/M^2/DAY; 2.3MG/KG/DAY
     Route: 048
     Dates: start: 20071201, end: 20080101
  3. NEXAVAR [Suspect]
     Dosage: 150 MG/M^2/DAY; 5 MG/KG/DAY
     Route: 048
     Dates: start: 20060101, end: 20060101

REACTIONS (13)
  - ALOPECIA [None]
  - ASPARTATE AMINOTRANSFERASE INCREASED [None]
  - HAEMOGLOBIN INCREASED [None]
  - HAIR COLOUR CHANGES [None]
  - HYPERBILIRUBINAEMIA [None]
  - HYPERPARATHYROIDISM SECONDARY [None]
  - HYPOCALCAEMIA [None]
  - LIPASE INCREASED [None]
  - NEUTROPENIA [None]
  - PALMAR-PLANTAR ERYTHRODYSAESTHESIA SYNDROME [None]
  - RASH PRURITIC [None]
  - THROMBOCYTOPENIA [None]
  - WEIGHT DECREASED [None]
